FAERS Safety Report 9807824 (Version 2)
Quarter: 2014Q4

REPORT INFORMATION
  Report Type: Report from Study
  Country: AU (occurrence: AU)
  Receive Date: 20140110
  Receipt Date: 20141114
  Transmission Date: 20150529
  Serious: Yes (Hospitalization, Other)
  Sender: FDA-Public Use
  Company Number: AU-ROCHE-1330617

PATIENT
  Sex: Female

DRUGS (6)
  1. PREDNISONE. [Concomitant]
     Active Substance: PREDNISONE
  2. RITUXIMAB [Suspect]
     Active Substance: RITUXIMAB
     Indication: IDIOPATHIC URTICARIA
  3. MYCOPHENOLATE MOFETIL. [Suspect]
     Active Substance: MYCOPHENOLATE MOFETIL
     Indication: PRODUCT USED FOR UNKNOWN INDICATION
     Route: 065
  4. PREDNISOLONE. [Concomitant]
     Active Substance: PREDNISOLONE
  5. AZATHIOPRINE. [Concomitant]
     Active Substance: AZATHIOPRINE
  6. RITUXIMAB [Suspect]
     Active Substance: RITUXIMAB
     Indication: IDIOPATHIC ANGIOEDEMA
     Route: 065
     Dates: start: 201211

REACTIONS (3)
  - Urticaria [Unknown]
  - Idiopathic urticaria [Unknown]
  - Idiopathic angioedema [Unknown]
